APPROVED DRUG PRODUCT: MYLAXEN
Active Ingredient: HEXAFLUORENIUM BROMIDE
Strength: 20MG/ML
Dosage Form/Route: INJECTABLE;INJECTION
Application: N009789 | Product #003
Applicant: MEDPOINTE PHARMACEUTICALS MEDPOINTE HEALTHCARE INC
Approved: Approved Prior to Jan 1, 1982 | RLD: No | RS: No | Type: DISCN